FAERS Safety Report 8435804-1 (Version None)
Quarter: 2012Q2

REPORT INFORMATION
  Report Type: 
  Country: None (occurrence: None)
  Receive Date: 20120608
  Receipt Date: 20120608
  Transmission Date: 20120825
  Serious: Yes (Other)
  Sender: FDA-Public Use
  Company Number: None

PATIENT
  Age: 66 Year
  Sex: Male
  Weight: 48.3 kg

DRUGS (1)
  1. MEGESTROL ACETATE [Suspect]
     Indication: DECREASED APPETITE
     Dosage: 20 ML EVERY DAY PO
     Route: 048
     Dates: start: 20111213, end: 20120104

REACTIONS (4)
  - PNEUMONIA [None]
  - ADRENAL INSUFFICIENCY [None]
  - MALAISE [None]
  - HYPOTENSION [None]
